FAERS Safety Report 6673135-0 (Version None)
Quarter: 2010Q2

REPORT INFORMATION
  Report Type: 
  Country: None (occurrence: None)
  Receive Date: 20100408
  Receipt Date: 20100330
  Transmission Date: 20101027
  Serious: Yes (Other)
  Sender: FDA-Public Use
  Company Number: IT-JNJFOC-20100307964

PATIENT
  Sex: Female

DRUGS (2)
  1. STELARA [Suspect]
     Indication: PSORIASIS
     Route: 058
  2. SANDIMMUNE [Concomitant]
     Route: 048

REACTIONS (4)
  - HYPERPYREXIA [None]
  - LYMPHADENOPATHY [None]
  - PSORIASIS [None]
  - PUSTULAR PSORIASIS [None]
